FAERS Safety Report 7878966-7 (Version None)
Quarter: 2011Q4

REPORT INFORMATION
  Report Type: 
  Country: None (occurrence: None)
  Receive Date: 20111101
  Receipt Date: 20111020
  Transmission Date: 20120403
  Serious: Yes (Other)
  Sender: FDA-Public Use
  Company Number: PHEH2011US07559

PATIENT
  Sex: Female

DRUGS (4)
  1. RECLAST [Suspect]
     Indication: OSTEOPOROSIS
     Dosage: UNK UKN, YEARLY
     Route: 042
     Dates: start: 20100101
  2. DILTIAZEM HCL [Concomitant]
     Dosage: 240 MG, DAILY
  3. RECLAST [Suspect]
     Dosage: UNK UKN, YEARLY
     Route: 042
     Dates: start: 20110802
  4. RANITIDINE [Concomitant]
     Indication: ABDOMINAL DISTENSION

REACTIONS (9)
  - MYOCARDIAL INFARCTION [None]
  - MUSCLE STRAIN [None]
  - RESTLESSNESS [None]
  - MYALGIA [None]
  - GAIT DISTURBANCE [None]
  - PAIN [None]
  - ASTHENIA [None]
  - SCIATICA [None]
  - BUNDLE BRANCH BLOCK LEFT [None]
